FAERS Safety Report 9026193 (Version 2)
Quarter: 2013Q1

REPORT INFORMATION
  Report Type: Spontaneous
  Country: US (occurrence: None)
  Receive Date: 20130104
  Receipt Date: 20130125
  Transmission Date: 20140127
  Serious: No
  Sender: FDA-Public Use
  Company Number: THQ2012A11639

PATIENT
  Sex: 0
  Weight: 1.06 kg

DRUGS (1)
  1. LANSOPRAZOLE (LANSOPRAZOLE) [Suspect]
     Indication: GASTROOESOPHAGEAL REFLUX DISEASE
     Route: 064

REACTIONS (6)
  - Premature baby [None]
  - Placental transfusion syndrome [None]
  - Breech presentation [None]
  - Foetal exposure during pregnancy [None]
  - Caesarean section [None]
  - Maternal drugs affecting foetus [None]
